FAERS Safety Report 26185929 (Version 1)
Quarter: 2025Q4

REPORT INFORMATION
  Report Type: Spontaneous
  Country: JP (occurrence: JP)
  Receive Date: 20251222
  Receipt Date: 20251222
  Transmission Date: 20260118
  Serious: Yes (Other)
  Sender: ROCHE
  Company Number: JP-CHUGAI-2025041257

PATIENT
  Age: 80 Year
  Sex: Male
  Weight: 52 kg

DRUGS (1)
  1. ACTEMRA [Suspect]
     Active Substance: TOCILIZUMAB
     Indication: Rheumatoid arthritis
     Dosage: 162 MILLIGRAM
     Route: 058

REACTIONS (6)
  - Lymphoma [Unknown]
  - Weight decreased [Unknown]
  - Musculoskeletal chest pain [Unknown]
  - Arthralgia [Unknown]
  - Pruritus [Unknown]
  - Eczema [Unknown]

NARRATIVE: CASE EVENT DATE: 20240101
